FAERS Safety Report 8307855-9 (Version None)
Quarter: 2012Q2

REPORT INFORMATION
  Report Type: 
  Country: None (occurrence: None)
  Receive Date: 20120424
  Receipt Date: 20120423
  Transmission Date: 20120825
  Serious: Yes (Hospitalization)
  Sender: FDA-Public Use
  Company Number: AR-ROCHE-1037220

PATIENT
  Sex: Female
  Weight: 84 kg

DRUGS (4)
  1. PACLITAXEL [Concomitant]
     Indication: BREAST CANCER
  2. HERCEPTIN [Suspect]
     Indication: BREAST CANCER
     Route: 042
     Dates: start: 20110201, end: 20120123
  3. ENALAPRIL MALEATE [Concomitant]
  4. HERCEPTIN [Suspect]
     Route: 011

REACTIONS (2)
  - ACUTE FEBRILE NEUTROPHILIC DERMATOSIS [None]
  - PYREXIA [None]
